FAERS Safety Report 23448646 (Version 1)
Quarter: 2024Q1

REPORT INFORMATION
  Report Type: Other
  Country: US (occurrence: US)
  Receive Date: 20240127
  Receipt Date: 20240127
  Transmission Date: 20240410
  Serious: No
  Sender: FDA-Public Use
  Company Number: US-TRAVERE-2023TVT00928

PATIENT
  Sex: Male

DRUGS (2)
  1. FILSPARI [Suspect]
     Active Substance: SPARSENTAN
     Indication: IgA nephropathy
     Dosage: 200 MG
     Route: 048
     Dates: start: 20231208
  2. FILSPARI [Suspect]
     Active Substance: SPARSENTAN
     Dosage: 400 MG
     Route: 048

REACTIONS (3)
  - Abdominal discomfort [Unknown]
  - Extra dose administered [Unknown]
  - Nausea [Unknown]
